FAERS Safety Report 21529523 (Version 9)
Quarter: 2023Q1

REPORT INFORMATION
  Report Type: Report from Study
  Country: MX (occurrence: None)
  Receive Date: 20221031
  Receipt Date: 20230221
  Transmission Date: 20230418
  Serious: Yes (Life-Threatening, Hospitalization)
  Sender: FDA-Public Use
  Company Number: MX-ROCHE-3208796

PATIENT
  Age: 43 Year
  Sex: Male
  Weight: 78.7 kg

DRUGS (13)
  1. POLATUZUMAB VEDOTIN [Suspect]
     Active Substance: POLATUZUMAB VEDOTIN
     Indication: Diffuse large B-cell lymphoma
     Dosage: ON 04/OCT/2022, THE PATIENT WAS RECEIVED MOST RECENT DOSE OF POLATUZUMAB VEDOTIN AT 140 MG PRIOR TO
     Route: 042
     Dates: start: 20220713
  2. RITUXIMAB [Suspect]
     Active Substance: RITUXIMAB
     Indication: Diffuse large B-cell lymphoma
     Dosage: ON 04/OCT/2022, THE PATIENT WAS RECEIVED MOST RECENT DOSE OF RITUXIMAB AT 731 MG PRIOR TO AE/SAE ONS
     Route: 041
     Dates: start: 20220713
  3. GEMCITABINE [Suspect]
     Active Substance: GEMCITABINE
     Indication: Diffuse large B-cell lymphoma
     Dosage: ON 05/OCT/2022, THE PATIENT WAS RECEIVED MOST RECENT DOSE OF GEMCITABINE AT 1950 MG PRIOR TO AE/SAE
     Route: 042
     Dates: start: 20220714
  4. OXALIPLATIN [Suspect]
     Active Substance: OXALIPLATIN
     Indication: Diffuse large B-cell lymphoma
     Dosage: ON 05/OCT/2022, THE PATIENT WAS RECEIVED MOST RECENT DOSE OF OXALIPLATIN AT 195 MG PRIOR TO AE/SAE O
     Route: 042
     Dates: start: 20220714
  5. ACYCLOVIR [Concomitant]
     Active Substance: ACYCLOVIR
     Route: 048
     Dates: start: 20220714
  6. SULFAMETHOXAZOLE\TRIMETHOPRIM [Concomitant]
     Active Substance: SULFAMETHOXAZOLE\TRIMETHOPRIM
     Route: 048
     Dates: start: 20220714
  7. APIXABAN [Concomitant]
     Active Substance: APIXABAN
     Route: 048
     Dates: start: 20221006
  8. CASPOFUNGIN [Concomitant]
     Active Substance: CASPOFUNGIN
     Dates: start: 20221031
  9. AMPHOTERICIN B [Concomitant]
     Active Substance: AMPHOTERICIN B
     Dates: start: 20221031
  10. CLARITHROMYCIN [Concomitant]
     Active Substance: CLARITHROMYCIN
     Dates: start: 20221031
  11. VORICONAZOLE [Concomitant]
     Active Substance: VORICONAZOLE
     Dates: start: 20221010
  12. ALLOPURINOL [Concomitant]
     Active Substance: ALLOPURINOL
     Indication: Hyperuricaemia
     Route: 048
     Dates: start: 20220108
  13. ONDANSETRON [Concomitant]
     Active Substance: ONDANSETRON
     Indication: Vomiting
     Route: 048
     Dates: start: 20220809, end: 20220810

REACTIONS (1)
  - COVID-19 pneumonia [Recovered/Resolved]

NARRATIVE: CASE EVENT DATE: 20221006
